FAERS Safety Report 16968042 (Version 1)
Quarter: 2019Q4

REPORT INFORMATION
  Report Type: Spontaneous
  Country: IN (occurrence: IN)
  Receive Date: 20191028
  Receipt Date: 20191028
  Transmission Date: 20200122
  Serious: Yes (Death)
  Sender: FDA-Public Use
  Company Number: IN-ALLERGAN-1943042US

PATIENT

DRUGS (3)
  1. AZTREONAM. [Suspect]
     Active Substance: AZTREONAM
     Indication: AMNIOTIC CAVITY INFECTION
     Dosage: UNK
     Route: 065
  2. CEFTAZIDIME;AVIBACTAM - BP [Suspect]
     Active Substance: AVIBACTAM SODIUM\CEFTAZIDIME
     Indication: AMNIOTIC CAVITY INFECTION
     Dosage: UNK
     Route: 065
  3. TIGECYCLINE. [Suspect]
     Active Substance: TIGECYCLINE
     Indication: AMNIOTIC CAVITY INFECTION
     Dosage: UNK
     Route: 065

REACTIONS (1)
  - Death [Fatal]
